FAERS Safety Report 7064341-4 (Version None)
Quarter: 2010Q4

REPORT INFORMATION
  Report Type: 
  Country: None (occurrence: None)
  Receive Date: 20101022
  Receipt Date: 20101022
  Transmission Date: 20110411
  Serious: No
  Sender: FDA-Public Use
  Company Number: None

PATIENT

DRUGS (2)
  1. MESTINON [Suspect]
  2. MESTINON [Suspect]

REACTIONS (3)
  - DRUG LABEL CONFUSION [None]
  - INTERCEPTED MEDICATION ERROR [None]
  - MEDICATION ERROR [None]
